FAERS Safety Report 9067892 (Version 1)
Quarter: 2013Q1

REPORT INFORMATION
  Report Type: Spontaneous
  Country: US (occurrence: US)
  Receive Date: 20130128
  Receipt Date: 20130128
  Transmission Date: 20140127
  Serious: No
  Sender: FDA-Public Use
  Company Number: US-TEVA-381508USA

PATIENT
  Sex: Female

DRUGS (2)
  1. TREANDA [Suspect]
     Dosage: 100 MGS / 20 ML
  2. LORAZEPAM [Concomitant]
     Indication: CONVULSION

REACTIONS (1)
  - Extravasation [Recovered/Resolved]
